FAERS Safety Report 6191813-7 (Version None)
Quarter: 2009Q2

REPORT INFORMATION
  Report Type: 
  Country: None (occurrence: None)
  Receive Date: 20090515
  Receipt Date: 20090511
  Transmission Date: 20091009
  Serious: Yes (Hospitalization)
  Sender: FDA-Public Use
  Company Number: ES-JNJFOC-20090502116

PATIENT
  Age: 19 Year
  Sex: Female

DRUGS (2)
  1. TAVANIC [Suspect]
     Indication: ACUTE TONSILLITIS
     Route: 048
  2. UNKNOWN MEDICATION [Concomitant]
     Route: 048

REACTIONS (1)
  - PALATAL OEDEMA [None]
